APPROVED DRUG PRODUCT: KETOCONAZOLE
Active Ingredient: KETOCONAZOLE
Strength: 200MG
Dosage Form/Route: TABLET;ORAL
Application: A219129 | Product #001 | TE Code: AB
Applicant: NOVITIUM PHARMA LLC
Approved: Jul 3, 2025 | RLD: No | RS: No | Type: RX